FAERS Safety Report 23842520 (Version 2)
Quarter: 2024Q2

REPORT INFORMATION
  Report Type: Spontaneous
  Country: JP (occurrence: JP)
  Receive Date: 20240510
  Receipt Date: 20240527
  Transmission Date: 20240716
  Serious: Yes (Other)
  Sender: FDA-Public Use
  Company Number: JP-TEVA-VS-3195574

PATIENT
  Age: 56 Year
  Sex: Male

DRUGS (9)
  1. PREDNISOLONE [Suspect]
     Active Substance: PREDNISOLONE
     Indication: B-cell lymphoma
     Dosage: RECEIVE A TOTAL OF 6 CYCLES AT 100MG/BODY WEIGHT DAY 1 TO 5 OF THE CYCLE
     Route: 065
  2. PIRARUBICIN [Suspect]
     Active Substance: PIRARUBICIN
     Indication: B-cell lymphoma
     Route: 065
  3. PLERIXAFOR [Suspect]
     Active Substance: PLERIXAFOR
     Indication: B-cell lymphoma
     Route: 065
  4. VINCRISTINE [Suspect]
     Active Substance: VINCRISTINE
     Indication: B-cell lymphoma
     Dosage: RECEIVE A TOTAL OF 6 CYCLES AT 2MG/BODY WEIGHT ON DAY1 OF THE CYCLE
     Route: 065
  5. RITUXIMAB [Suspect]
     Active Substance: RITUXIMAB
     Indication: Central nervous system lymphoma
     Dosage: RECEIVE A TOTAL OF 6 CYCLES
     Route: 065
  6. CYCLOPHOSPHAMIDE [Suspect]
     Active Substance: CYCLOPHOSPHAMIDE
     Indication: B-cell lymphoma
     Dosage: RECEIVE A TOTAL OF 6 CYCLES
     Route: 065
  7. ETOPOSIDE [Suspect]
     Active Substance: ETOPOSIDE
     Indication: B-cell lymphoma
     Route: 065
  8. METHOTREXATE [Suspect]
     Active Substance: METHOTREXATE
     Indication: B-cell lymphoma
     Dosage: RECEIVE ON DAY 15 OF THE CYCLE, A TOTAL OF 6 CYCLES
     Route: 065
  9. THIOTEPA [Suspect]
     Active Substance: THIOTEPA
     Indication: Central nervous system lymphoma
     Dosage: RECEIVED AT HIGH DOSE ON?DAYS -8, -7, -6 AND -5 PRIOR TO THE?AUTO-HAEMATOPOIETIC STEM CELL TRANSP...
     Route: 065

REACTIONS (1)
  - Febrile neutropenia [Unknown]
